FAERS Safety Report 16117379 (Version 7)
Quarter: 2020Q2

REPORT INFORMATION
  Report Type: Report from Study
  Country: US (occurrence: US)
  Receive Date: 20190326
  Receipt Date: 20200511
  Transmission Date: 20200713
  Serious: Yes (Hospitalization, Other)
  Sender: FDA-Public Use
  Company Number: PHEH2019US012234

PATIENT
  Age: 32 Year
  Sex: Female

DRUGS (4)
  1. RAPAMUNE [Concomitant]
     Active Substance: SIROLIMUS
     Indication: TUBEROUS SCLEROSIS COMPLEX
     Route: 061
  2. DEXAMETHASONE. [Suspect]
     Active Substance: DEXAMETHASONE
     Indication: PRODUCT USED FOR UNKNOWN INDICATION
     Dosage: UNK
     Route: 065
  3. AFINITOR [Suspect]
     Active Substance: EVEROLIMUS
     Indication: ANGIOMYOLIPOMA
  4. AFINITOR [Suspect]
     Active Substance: EVEROLIMUS
     Indication: ASTROCYTOMA, LOW GRADE
     Dosage: 2.5 MG, QD (ONCE DAILY)
     Route: 048
     Dates: start: 20190306

REACTIONS (13)
  - Chest pain [Unknown]
  - Oropharyngeal pain [Unknown]
  - Chills [Unknown]
  - Tongue discomfort [Unknown]
  - Vaginal ulceration [Recovered/Resolved]
  - Abdominal pain upper [Unknown]
  - Sneezing [Unknown]
  - Vertigo [Unknown]
  - Feeling abnormal [Unknown]
  - Ankle fracture [Unknown]
  - Nasopharyngitis [Unknown]
  - Cough [Unknown]
  - Seizure [Unknown]

NARRATIVE: CASE EVENT DATE: 20200322
